FAERS Safety Report 23425769 (Version 2)
Quarter: 2024Q1

REPORT INFORMATION
  Report Type: Report from Study
  Country: CA (occurrence: CA)
  Receive Date: 20240122
  Receipt Date: 20240131
  Transmission Date: 20240410
  Serious: Yes (Hospitalization)
  Sender: FDA-Public Use
  Company Number: CA-AMGEN-CANSL2024008949

PATIENT
  Age: 69 Year
  Sex: Male

DRUGS (1)
  1. ADALIMUMAB [Suspect]
     Active Substance: ADALIMUMAB\ISOPROPYL ALCOHOL
     Indication: Psoriatic arthropathy
     Dosage: 40MG/0.8ML, Q2WK
     Route: 065
     Dates: start: 20230604, end: 20231103

REACTIONS (2)
  - Haematological infection [Unknown]
  - Therapy interrupted [Unknown]
